FAERS Safety Report 18550770 (Version 1)
Quarter: 2020Q4

REPORT INFORMATION
  Report Type: Report from Study
  Country: None (occurrence: ZA)
  Receive Date: 20201126
  Receipt Date: 20201126
  Transmission Date: 20210114
  Serious: Yes (Death)
  Sender: FDA-Public Use
  Company Number: ZA-ABBVIE-20K-143-3668275-00

PATIENT
  Age: 9 Month
  Sex: Female

DRUGS (1)
  1. SYNAGIS [Suspect]
     Active Substance: PALIVIZUMAB
     Indication: ANTIVIRAL PROPHYLAXIS
     Route: 050
     Dates: start: 20200531, end: 20200612

REACTIONS (1)
  - Death [Fatal]

NARRATIVE: CASE EVENT DATE: 202007
